FAERS Safety Report 7339387-9 (Version None)
Quarter: 2011Q1

REPORT INFORMATION
  Report Type: 
  Country: None (occurrence: None)
  Receive Date: 20110308
  Receipt Date: 20110228
  Transmission Date: 20110831
  Serious: Yes (Other)
  Sender: FDA-Public Use
  Company Number: JP-NAPPMUNDI-MAG-2011-0001413

PATIENT
  Sex: Female

DRUGS (14)
  1. SERENACE [Concomitant]
     Indication: VOMITING
  2. CALONAL [Concomitant]
     Indication: CANCER PAIN
     Route: 048
  3. SEROQUEL [Concomitant]
     Dosage: UNK
     Route: 048
  4. RISPERDAL [Concomitant]
     Route: 048
  5. AMLODIPINE [Concomitant]
     Dosage: UNK
     Route: 048
  6. SERENACE [Concomitant]
     Indication: PROPHYLAXIS OF NAUSEA AND VOMITING
     Dosage: UNK
     Route: 048
  7. OXYCODONE HCL PR TABLET 40 MG [Suspect]
     Indication: CANCER PAIN
     Dosage: 40 MG, DAILY
     Route: 048
     Dates: start: 20101102, end: 20101111
  8. LOXONIN [Concomitant]
     Indication: CANCER PAIN
     Dosage: 60 MG, DAILY
     Route: 048
     Dates: start: 20101102, end: 20101111
  9. SERENACE [Concomitant]
     Indication: NAUSEA
  10. LYRICA [Concomitant]
     Indication: CANCER PAIN
     Dosage: UNK
  11. PURSENNID                          /00571902/ [Concomitant]
     Indication: CONSTIPATION PROPHYLAXIS
     Dosage: UNK
     Route: 048
  12. COCARL [Concomitant]
     Indication: CANCER PAIN
     Dosage: UNK
     Route: 048
  13. MAGNESIUM OXIDE [Concomitant]
     Indication: CONSTIPATION PROPHYLAXIS
     Dosage: UNK
     Route: 048
  14. BUP-4 [Concomitant]
     Dosage: UNK
     Route: 048

REACTIONS (6)
  - INFECTION [None]
  - CONSTIPATION [None]
  - VOMITING [None]
  - DELIRIUM [None]
  - SOMNOLENCE [None]
  - NAUSEA [None]
